FAERS Safety Report 9516426 (Version 1)
Quarter: 2013Q1

REPORT INFORMATION
  Report Type: Spontaneous
  Country: US (occurrence: None)
  Receive Date: 20130305
  Receipt Date: 20130305
  Transmission Date: 20140127
  Serious: Yes (Hospitalization, Other)
  Sender: FDA-Public Use
  Company Number: 163-21880-12080567

PATIENT
  Age: 75 Year
  Sex: Female
  Weight: 77.11 kg

DRUGS (9)
  1. REVLIMID (LENALIDOMIDE) (15 MILLIGRAM, CAPSULES) [Suspect]
     Indication: PLASMA CELL MYELOMA
     Dosage: 15 MG, 1 IN 1 D, PO
     Route: 048
     Dates: start: 20120711, end: 20120723
  2. MORPHINE SULFATE (MORPHINE SULFATE) (UNKNOWN) [Concomitant]
  3. HYDROMORPHONE (HYDROMORPHONE) (UNKNOWN) (HYDROMORPHONE) [Concomitant]
  4. DIGOXIN (DIGOXIN) (UNKNOWN) (DIGOXIN) [Concomitant]
  5. ACYCLOVIR (ACICLOVIR) (UNKNOWN) [Concomitant]
  6. GABAPENTIN (GABAPENTIN) (UNKNOWN) (GABAPENTIN) [Concomitant]
  7. SYNTHROID (LEVOTHYROXINE SODIUM) (UNKNOWN) [Concomitant]
  8. WARFARIN (WARFARIN) (UNKNOWN) [Concomitant]
  9. FUROSEMIDE (FUROSEMIDE) (UNKNOWN) [Concomitant]

REACTIONS (3)
  - Transient ischaemic attack [None]
  - Pyrexia [None]
  - Infection [None]
